FAERS Safety Report 15471661 (Version 2)
Quarter: 2018Q4

REPORT INFORMATION
  Report Type: Spontaneous
  Country: US (occurrence: US)
  Receive Date: 20181008
  Receipt Date: 20181011
  Transmission Date: 20190205
  Serious: No
  Sender: FDA-Public Use
  Company Number: US-UNITED THERAPEUTICS-UNT-2018-016032

PATIENT
  Sex: Male

DRUGS (2)
  1. REMODULIN [Suspect]
     Active Substance: TREPROSTINIL
     Indication: PULMONARY ARTERIAL HYPERTENSION
     Dosage: 0.0095 ?G/KG, CONTINUING
     Route: 058
     Dates: start: 20180807
  2. REMODULIN [Suspect]
     Active Substance: TREPROSTINIL
     Dosage: 0.006 ?G/KG, CONTINUING
     Route: 058

REACTIONS (9)
  - Vomiting [Unknown]
  - Device issue [Unknown]
  - Gastrooesophageal reflux disease [Recovering/Resolving]
  - Flushing [Unknown]
  - Malaise [Unknown]
  - Accidental overdose [Unknown]
  - Headache [Unknown]
  - Pain [Unknown]
  - Burning sensation [Not Recovered/Not Resolved]

NARRATIVE: CASE EVENT DATE: 2018
